FAERS Safety Report 10152455 (Version 2)
Quarter: 2014Q2

REPORT INFORMATION
  Report Type: Spontaneous
  Country: US (occurrence: US)
  Receive Date: 20140505
  Receipt Date: 20140505
  Transmission Date: 20141212
  Serious: No
  Sender: FDA-Public Use
  Company Number: US-TEVA-393009USA

PATIENT
  Age: 18 Year
  Sex: Male

DRUGS (2)
  1. CLARAVIS [Suspect]
     Dosage: 40 MG IN AM, 20 MG PM FOR A TOTAL OF 60 MG
     Route: 048
     Dates: start: 201302
  2. CLARAVIS [Suspect]
     Dosage: 80 MILLIGRAM DAILY;
     Route: 048
     Dates: start: 201301, end: 201302

REACTIONS (1)
  - Depressed mood [Unknown]
